FAERS Safety Report 20574153 (Version 1)
Quarter: 2022Q1

REPORT INFORMATION
  Report Type: Spontaneous
  Country: FR (occurrence: FR)
  Receive Date: 20220309
  Receipt Date: 20220309
  Transmission Date: 20220424
  Serious: Yes (Hospitalization)
  Sender: FDA-Public Use
  Company Number: None

PATIENT
  Age: 57 Year
  Sex: Female

DRUGS (2)
  1. PREGABALIN [Suspect]
     Active Substance: PREGABALIN
     Dosage: 125 MG, DAILY (75 MG IN THE MORNING AND 50 MG IN THE EVENING)
     Route: 048
  2. TRAMADOL [Suspect]
     Active Substance: TRAMADOL
     Dosage: 250 MG, DAILY (100 MG LP IN THE MORNING AND IN THE EVENING + LI 50 MG AT NOON)
     Route: 048

REACTIONS (1)
  - Drug use disorder [Not Recovered/Not Resolved]
